FAERS Safety Report 12476762 (Version 1)
Quarter: 2016Q2

REPORT INFORMATION
  Report Type: Report from Study
  Country: None (occurrence: JP)
  Receive Date: 20160617
  Receipt Date: 20160617
  Transmission Date: 20160815
  Serious: Yes (Other)
  Sender: FDA-Public Use
  Company Number: JP-EISAI MEDICAL RESEARCH-EC-2016-017819

PATIENT
  Age: 70 Year
  Sex: Female

DRUGS (6)
  1. PREDNISOLONE. [Concomitant]
     Active Substance: PREDNISOLONE
  2. TRACLEER [Concomitant]
     Active Substance: BOSENTAN
  3. ARICEPT [Suspect]
     Active Substance: DONEPEZIL HYDROCHLORIDE
     Indication: DEMENTIA WITH LEWY BODIES
     Route: 048
     Dates: start: 20160128, end: 20160130
  4. BREDININ [Concomitant]
     Active Substance: MIZORIBINE
  5. LASIX [Concomitant]
     Active Substance: FUROSEMIDE
  6. FORTEO [Concomitant]
     Active Substance: TERIPARATIDE

REACTIONS (1)
  - Seizure [Recovered/Resolved]

NARRATIVE: CASE EVENT DATE: 20160128
